FAERS Safety Report 8601129-4 (Version None)
Quarter: 2012Q3

REPORT INFORMATION
  Report Type: 
  Country: None (occurrence: None)
  Receive Date: 20120806
  Receipt Date: 20120725
  Transmission Date: 20120928
  Serious: Yes (Death, Other)
  Sender: FDA-Public Use
  Company Number: 2012MA009120

PATIENT
  Age: 45 Year
  Sex: Female

DRUGS (7)
  1. AMITRIPTYLINE HYDROCHLORIDE [Suspect]
     Indication: PRODUCT USED FOR UNKNOWN INDICATION
     Dosage: PO
     Route: 048
  2. ALPRAZOLAM [Suspect]
     Indication: PRODUCT USED FOR UNKNOWN INDICATION
     Dosage: PO
     Route: 048
  3. CETIRIZINE HCL [Suspect]
     Indication: PRODUCT USED FOR UNKNOWN INDICATION
     Dosage: PO
     Route: 048
  4. PAROXETINE [Concomitant]
  5. DEXOMETHORPHAN [Concomitant]
  6. KADIAN [Suspect]
     Indication: PRODUCT USED FOR UNKNOWN INDICATION
     Dosage: PO
     Route: 048
  7. NORTRIPTYLINE [Concomitant]

REACTIONS (8)
  - SCAB [None]
  - TOXICITY TO VARIOUS AGENTS [None]
  - CHRONIC OBSTRUCTIVE PULMONARY DISEASE [None]
  - EMPHYSEMA [None]
  - EXCORIATION [None]
  - CARDIO-RESPIRATORY ARREST [None]
  - PLEURAL ADHESION [None]
  - CONTUSION [None]
